FAERS Safety Report 25904350 (Version 1)
Quarter: 2025Q4

REPORT INFORMATION
  Report Type: Spontaneous
  Country: EU (occurrence: EU)
  Receive Date: 20251010
  Receipt Date: 20251010
  Transmission Date: 20260117
  Serious: Yes (Hospitalization, Other)
  Sender: BIOVITRUM
  Company Number: EU-BIOVITRUM-2025-IT-013645

PATIENT
  Sex: Female

DRUGS (1)
  1. ANAKINRA [Suspect]
     Active Substance: ANAKINRA
     Indication: Haemophagocytic lymphohistiocytosis

REACTIONS (7)
  - Pyrexia [Unknown]
  - Pancytopenia [Unknown]
  - Hyperferritinaemia [Unknown]
  - Hypertriglyceridaemia [Unknown]
  - Hypofibrinogenaemia [Unknown]
  - Blood lactate dehydrogenase increased [Unknown]
  - Off label use [Unknown]
